FAERS Safety Report 16747833 (Version 2)
Quarter: 2019Q3

REPORT INFORMATION
  Report Type: Report from Study
  Country: IL (occurrence: IL)
  Receive Date: 20190827
  Receipt Date: 20190924
  Transmission Date: 20191005
  Serious: Yes (Other)
  Sender: FDA-Public Use
  Company Number: PHHY2018IL192168

PATIENT
  Age: 74 Year
  Sex: Female
  Weight: 62.5 kg

DRUGS (2)
  1. AFINITOR [Suspect]
     Active Substance: EVEROLIMUS
     Indication: BREAST CANCER
     Dosage: 10 MG, QD
     Route: 048
     Dates: start: 20181213, end: 20190410
  2. AFINITOR [Suspect]
     Active Substance: EVEROLIMUS
     Dosage: 7.5 MG, QD
     Route: 048
     Dates: end: 20190901

REACTIONS (17)
  - Taste disorder [Not Recovered/Not Resolved]
  - Malignant neoplasm progression [Unknown]
  - Pneumonia [Recovered/Resolved]
  - Headache [Recovered/Resolved]
  - Nausea [Recovered/Resolved]
  - Pyrexia [Recovered/Resolved]
  - Diarrhoea [Recovered/Resolved]
  - Breast cancer [Unknown]
  - Pyrexia [Recovered/Resolved]
  - Abdominal rigidity [Recovered/Resolved]
  - Cough [Recovered/Resolved]
  - Weight decreased [Not Recovered/Not Resolved]
  - Nasopharyngitis [Recovered/Resolved]
  - Fatigue [Not Recovered/Not Resolved]
  - Decreased appetite [Not Recovered/Not Resolved]
  - Diarrhoea [Not Recovered/Not Resolved]
  - Vaginal haemorrhage [Recovering/Resolving]

NARRATIVE: CASE EVENT DATE: 20190410
